FAERS Safety Report 6433822-6 (Version None)
Quarter: 2009Q4

REPORT INFORMATION
  Report Type: 
  Country: None (occurrence: None)
  Receive Date: 20091106
  Receipt Date: 20091106
  Transmission Date: 20100525
  Serious: Yes (Hospitalization)
  Sender: FDA-Public Use
  Company Number: None

PATIENT
  Age: 66 Year

DRUGS (2)
  1. LOSARTAN POTASSIUM [Suspect]
     Indication: HYPERTENSION
     Dosage: 25 MG EVERY DAY PO
     Route: 048
     Dates: start: 20090910, end: 20090923
  2. LOSARTAN POTASSIUM [Suspect]
     Indication: PROTEINURIA
     Dosage: 25 MG EVERY DAY PO
     Route: 048
     Dates: start: 20090910, end: 20090923

REACTIONS (1)
  - ANGIOEDEMA [None]
